FAERS Safety Report 19627706 (Version 1)
Quarter: 2021Q3

REPORT INFORMATION
  Report Type: Spontaneous
  Country: US (occurrence: US)
  Receive Date: 20210728
  Receipt Date: 20210728
  Transmission Date: 20211014
  Serious: Yes (Hospitalization, Other)
  Sender: FDA-Public Use
  Company Number: US-TEVA-2021-US-1936677

PATIENT
  Age: 64 Year
  Sex: Male

DRUGS (1)
  1. CARBIDOPA /LEVODOPA [Suspect]
     Active Substance: CARBIDOPA\LEVODOPA
     Route: 065

REACTIONS (5)
  - Dyskinesia [Unknown]
  - Tachyphrenia [Unknown]
  - Paranoia [Unknown]
  - Behaviour disorder [Unknown]
  - Hallucination [Unknown]

NARRATIVE: CASE EVENT DATE: 202103
